FAERS Safety Report 9131035 (Version 2)
Quarter: 2013Q3

REPORT INFORMATION
  Report Type: Spontaneous
  Country: FR (occurrence: FR)
  Receive Date: 20130301
  Receipt Date: 20130801
  Transmission Date: 20140515
  Serious: Yes (Hospitalization)
  Sender: FDA-Public Use
  Company Number: FR-JNJFOC-20130211222

PATIENT
  Age: 57 Year
  Sex: Male

DRUGS (8)
  1. HALDOL [Suspect]
     Indication: PRODUCT USED FOR UNKNOWN INDICATION
     Route: 048
     Dates: start: 2010, end: 20121121
  2. TOPLEXIL NOS [Suspect]
     Indication: COUGH
     Route: 048
     Dates: start: 201210, end: 201211
  3. TUSSIDANE [Suspect]
     Indication: COUGH
     Route: 048
     Dates: start: 201210, end: 20121121
  4. INNOVAIR [Suspect]
     Indication: COUGH
     Route: 045
     Dates: start: 201211, end: 201211
  5. SOLUPRED [Suspect]
     Indication: COUGH
     Route: 065
     Dates: start: 201211, end: 201211
  6. INEXIUM [Suspect]
     Indication: PRODUCT USED FOR UNKNOWN INDICATION
     Route: 048
     Dates: start: 2010, end: 20121121
  7. VALIUM [Suspect]
     Indication: PRODUCT USED FOR UNKNOWN INDICATION
     Route: 065
     Dates: start: 2010, end: 20121121
  8. SULFARLEM [Suspect]
     Indication: PRODUCT USED FOR UNKNOWN INDICATION
     Dosage: THREE TIMES IN THREE DAYS
     Route: 048
     Dates: start: 2010, end: 20121121

REACTIONS (1)
  - Hepatitis acute [Recovered/Resolved]
